FAERS Safety Report 23436057 (Version 3)
Quarter: 2024Q3

REPORT INFORMATION
  Report Type: Spontaneous
  Country: CA (occurrence: CA)
  Receive Date: 20240124
  Receipt Date: 20240726
  Transmission Date: 20241017
  Serious: Yes (Other)
  Sender: CELLTRION
  Company Number: CA-CELLTRION INC.-2023CA020504

PATIENT

DRUGS (17)
  1. INFLECTRA [Suspect]
     Active Substance: INFLIXIMAB-DYYB
     Indication: Crohn^s disease
     Dosage: 700 MG,Q 0, 2, 6 WEEKS, THEN EVERY 8 WEEKS
     Route: 042
     Dates: start: 20200211, end: 20200326
  2. INFLECTRA [Suspect]
     Active Substance: INFLIXIMAB-DYYB
     Dosage: 1400 MG
     Route: 042
     Dates: start: 20200428, end: 20200428
  3. INFLECTRA [Suspect]
     Active Substance: INFLIXIMAB-DYYB
     Dosage: 1400 MG, EVERY 4 WEEKS
     Route: 042
     Dates: start: 20200629, end: 20220822
  4. INFLECTRA [Suspect]
     Active Substance: INFLIXIMAB-DYYB
     Dosage: 1400 MG, RESCUE DOSE AT THE HOSPITAL
     Route: 042
     Dates: start: 20200603, end: 20200603
  5. INFLECTRA [Suspect]
     Active Substance: INFLIXIMAB-DYYB
     Dosage: 1400 MG, Q 0,1, 5 THEN EVERY 4 WEEKS
     Route: 042
     Dates: start: 20220829
  6. INFLECTRA [Suspect]
     Active Substance: INFLIXIMAB-DYYB
     Dosage: 1400 MG, Q 0,1, 5 THEN EVERY 4 WEEKS
     Route: 042
     Dates: start: 20230829
  7. INFLECTRA [Suspect]
     Active Substance: INFLIXIMAB-DYYB
     Dosage: 1400 MG, 6 WEEKS AND 4 DAYS, Q 0,1, 5 THEN EVERY 4 WEEKS
     Route: 042
     Dates: start: 20231014
  8. INFLECTRA [Suspect]
     Active Substance: INFLIXIMAB-DYYB
     Dosage: 1400 MG AFTER 5 WEEKS (EVERY 4 WEEKS)
     Route: 042
     Dates: start: 20231118
  9. INFLECTRA [Suspect]
     Active Substance: INFLIXIMAB-DYYB
     Dosage: 1400 MG, 8 WEEKS
     Route: 042
     Dates: start: 20240113
  10. INFLECTRA [Suspect]
     Active Substance: INFLIXIMAB-DYYB
     Dosage: 1400 MG, Q 0,1, 5 THEN EVERY 4 WEEKS
     Route: 042
     Dates: start: 20240323
  11. INFLECTRA [Suspect]
     Active Substance: INFLIXIMAB-DYYB
     Dosage: 1400 MG, Q 0,1, 5 THEN EVERY 4 WEEKS (1400 MG AFTER 7 WEEKS AFTER LAST TREATMENT)
     Route: 042
     Dates: start: 20240511
  12. INFLECTRA [Suspect]
     Active Substance: INFLIXIMAB-DYYB
     Dosage: 1400 MG, EVERY 5 WEEKS
     Route: 042
     Dates: start: 20240615
  13. INFLECTRA [Suspect]
     Active Substance: INFLIXIMAB-DYYB
     Dosage: 1400 MG, 4 WEEKS AND 2 DAYS (1400MG, Q 0,1, 5 THEN EVERY 4 WEEKS)
     Route: 042
     Dates: start: 20240715
  14. CYMBALTA [Concomitant]
     Active Substance: DULOXETINE HYDROCHLORIDE
     Dosage: 1 DF,UNKNOWN
  15. DULOXETINE [Concomitant]
     Active Substance: DULOXETINE
     Dosage: 1 DF
  16. METHOTREXATE [Concomitant]
     Active Substance: METHOTREXATE
     Dosage: 1 DF, WEEKLY,DOSAGE NOT AVAILABLE
     Route: 048
  17. VANCOMYCIN [Concomitant]
     Active Substance: VANCOMYCIN
     Dosage: 1 DF,DOSAGE NOT AVAILABLE. TAPERING DOSE
     Route: 065

REACTIONS (6)
  - Condition aggravated [Recovering/Resolving]
  - Inappropriate schedule of product administration [Unknown]
  - Condition aggravated [Recovering/Resolving]
  - Abscess [Recovered/Resolved]
  - Arthralgia [Recovered/Resolved]
  - Aphthous ulcer [Not Recovered/Not Resolved]

NARRATIVE: CASE EVENT DATE: 20231014
